APPROVED DRUG PRODUCT: LISINOPRIL
Active Ingredient: LISINOPRIL
Strength: 40MG
Dosage Form/Route: TABLET;ORAL
Application: A076102 | Product #006 | TE Code: AB
Applicant: COREPHARMA LLC
Approved: Sep 30, 2002 | RLD: No | RS: No | Type: RX